FAERS Safety Report 18000460 (Version 1)
Quarter: 2020Q3

REPORT INFORMATION
  Report Type: Spontaneous
  Country: US (occurrence: US)
  Receive Date: 20200709
  Receipt Date: 20200709
  Transmission Date: 20201103
  Serious: No
  Sender: FDA-Public Use
  Company Number: None

PATIENT
  Age: 66 Year
  Sex: Female
  Weight: 85.9 kg

DRUGS (22)
  1. FUROSEMIDE. [Concomitant]
     Active Substance: FUROSEMIDE
     Dates: start: 20200629, end: 20200707
  2. NOREPINEPHRINE INFUSION [Concomitant]
     Dates: start: 20200707, end: 20200707
  3. DEXAMETHASONE. [Concomitant]
     Active Substance: DEXAMETHASONE
     Dates: start: 20200629, end: 20200707
  4. LINEZOLID. [Concomitant]
     Active Substance: LINEZOLID
     Dates: start: 20200707, end: 20200707
  5. ONDANSETRON [Concomitant]
     Active Substance: ONDANSETRON
     Dates: start: 20200628, end: 20200705
  6. PANTOPRAZOLE [Concomitant]
     Active Substance: PANTOPRAZOLE
     Dates: start: 20200705, end: 20200707
  7. PROPOFOL INFUSION [Concomitant]
     Active Substance: PROPOFOL
     Dates: start: 20200707, end: 20200707
  8. SODIUM BICARBONATE. [Concomitant]
     Active Substance: SODIUM BICARBONATE
     Dates: start: 20200707, end: 20200708
  9. VANCOMYCIN [Concomitant]
     Active Substance: VANCOMYCIN
     Dates: start: 20200707, end: 20200707
  10. HEPARIN [Concomitant]
     Active Substance: HEPARIN SODIUM
     Dates: start: 20200629, end: 20200702
  11. MEROPENEM. [Concomitant]
     Active Substance: MEROPENEM
     Dates: start: 20200707, end: 20200707
  12. HYDROCODONE/ACETAMINOPHEN [Concomitant]
     Active Substance: ACETAMINOPHEN\HYDROCODONE
     Dates: start: 20200704, end: 20200707
  13. REMDESIVIR. [Suspect]
     Active Substance: REMDESIVIR
     Indication: COVID-19
     Route: 042
     Dates: start: 20200630, end: 20200703
  14. PIPERACILLIN AND TAZOBACTAM [Concomitant]
     Active Substance: PIPERACILLIN SODIUM\TAZOBACTAM SODIUM
     Dates: start: 20200707, end: 20200707
  15. METOPROLOL SUCCINATE. [Concomitant]
     Active Substance: METOPROLOL SUCCINATE
     Dates: start: 20200629, end: 20200707
  16. NITROGLYCERIN TOPICAL [Concomitant]
     Dates: start: 20200705, end: 20200707
  17. ENOXAPARIN [Concomitant]
     Active Substance: ENOXAPARIN
     Dates: start: 20200705, end: 20200707
  18. INSULIN GLARGINE [Concomitant]
     Active Substance: INSULIN GLARGINE
     Dates: start: 20200629, end: 20200707
  19. LOSARTAN. [Concomitant]
     Active Substance: LOSARTAN
     Dates: start: 20200629, end: 20200707
  20. ACETAMINOPHEN. [Concomitant]
     Active Substance: ACETAMINOPHEN
     Dates: start: 20200628, end: 20200705
  21. AMLODIPINE [Concomitant]
     Active Substance: AMLODIPINE BESYLATE
     Dates: start: 20200629, end: 20200707
  22. ASPIRIN. [Concomitant]
     Active Substance: ASPIRIN
     Dates: start: 20200628, end: 20200707

REACTIONS (3)
  - Septic shock [None]
  - Cardiac arrest [None]
  - Acute kidney injury [None]

NARRATIVE: CASE EVENT DATE: 20200708
